FAERS Safety Report 5335787-7 (Version None)
Quarter: 2007Q1

REPORT INFORMATION
  Report Type: 
  Country: None (occurrence: None)
  Receive Date: 20070322
  Receipt Date: 20070104
  Transmission Date: 20070707
  Serious: Yes (Death)
  Sender: FDA-Public Use
  Company Number: US-CVT-070014

PATIENT
  Age: 60 Year
  Sex: Female

DRUGS (7)
  1. RANEXA [Suspect]
     Indication: ANGINA PECTORIS
     Dosage: SEE IMAGE
     Route: 048
     Dates: start: 20060420, end: 20061129
  2. RANEXA [Suspect]
     Indication: ANGINA PECTORIS
     Dosage: SEE IMAGE
     Route: 048
     Dates: start: 20061130, end: 20061226
  3. COREG [Concomitant]
  4. SYNTHROID [Concomitant]
  5. LIPITOR/01326101/ (ATORVASTATIN) [Concomitant]
  6. ASPIRIN [Concomitant]
  7. HUMULIN REGULAR (INSULIN HUMAN) [Concomitant]

REACTIONS (1)
  - MYOCARDIAL INFARCTION [None]
